FAERS Safety Report 10185316 (Version 2)
Quarter: 2014Q2

REPORT INFORMATION
  Report Type: Spontaneous
  Country: US (occurrence: US)
  Receive Date: 20140521
  Receipt Date: 20140521
  Transmission Date: 20141212
  Serious: No
  Sender: FDA-Public Use
  Company Number: US-PFIZER INC-2014136352

PATIENT
  Sex: Female

DRUGS (2)
  1. FENTANYL [Suspect]
     Indication: PROCTALGIA
     Dosage: UNK
  2. OXYCODONE HYDROCHLORIDE [Suspect]
     Indication: PROCTALGIA
     Dosage: UNK

REACTIONS (1)
  - Drug ineffective [Unknown]
